FAERS Safety Report 24050674 (Version 1)
Quarter: 2024Q3

REPORT INFORMATION
  Report Type: Spontaneous
  Country: US (occurrence: US)
  Receive Date: 20240704
  Receipt Date: 20240704
  Transmission Date: 20241017
  Serious: Yes (Other)
  Sender: LUPIN
  Company Number: US-LUPIN PHARMACEUTICALS INC.-2024-05714

PATIENT
  Age: 60 Year
  Sex: Male
  Weight: 73 kg

DRUGS (4)
  1. TENOFOVIR ALAFENAMIDE [Suspect]
     Active Substance: TENOFOVIR ALAFENAMIDE
     Indication: HIV infection
     Dosage: UNK
     Route: 065
  2. LAMIVUDINE [Concomitant]
     Active Substance: LAMIVUDINE
     Indication: HIV infection
     Dosage: UNK
     Route: 065
  3. SOFOSBUVIR [Concomitant]
     Active Substance: SOFOSBUVIR
     Indication: Antiretroviral therapy
     Dosage: UNK (12 WEEK COURSE)
     Route: 065
  4. VELPATASVIR [Concomitant]
     Active Substance: VELPATASVIR
     Indication: Antiretroviral therapy
     Dosage: UNK (12 WEEK COURSE)
     Route: 065

REACTIONS (2)
  - End stage renal disease [Unknown]
  - Toxicity to various agents [Unknown]
